FAERS Safety Report 4615783-5 (Version None)
Quarter: 2005Q1

REPORT INFORMATION
  Report Type: 
  Country: None (occurrence: None)
  Receive Date: 20050317
  Receipt Date: 20050301
  Transmission Date: 20050727
  Serious: Yes (Hospitalization)
  Sender: FDA-Public Use
  Company Number: 2005S1000868

PATIENT
  Sex: Female

DRUGS (1)
  1. NITROGLYCERIN [Suspect]
     Dosage: 0.4 MG/HR/QD; TDER

REACTIONS (3)
  - CHEST PAIN [None]
  - MEDICATION ERROR [None]
  - PANCREATITIS [None]
